FAERS Safety Report 16093202 (Version 2)
Quarter: 2022Q4

REPORT INFORMATION
  Report Type: Report from Study
  Country: AT (occurrence: AT)
  Receive Date: 20190320
  Receipt Date: 20221213
  Transmission Date: 20230112
  Serious: Yes (Hospitalization, Other)
  Sender: FDA-Public Use
  Company Number: None

PATIENT
  Age: 65 Year
  Sex: Male
  Weight: 56 kg

DRUGS (36)
  1. GEMCITABINE [Suspect]
     Active Substance: GEMCITABINE
     Indication: Pancreatic carcinoma
     Dosage: INTRAVENOUS INFUSION
     Route: 065
     Dates: start: 20160921
  2. ABRAXANE [Suspect]
     Active Substance: PACLITAXEL
     Indication: Product used for unknown indication
     Dosage: INTRAVENOUS INFUSION
     Dates: start: 20161215
  3. NEXIUM [Concomitant]
     Active Substance: ESOMEPRAZOLE MAGNESIUM
     Indication: Product used for unknown indication
     Dosage: 80 MILLIGRAM
     Route: 065
  4. kgdal [Concomitant]
     Indication: Product used for unknown indication
     Dosage: 4 MILLIGRAM
     Route: 065
  5. GEMCITABINE [Suspect]
     Active Substance: GEMCITABINE
     Indication: Product used for unknown indication
     Dosage: 7861 MILLIGRAM/SQ. METER
     Dates: start: 201610
  6. ABRAXANE [Suspect]
     Active Substance: PACLITAXEL
     Indication: Pancreatic carcinoma
     Dosage: 315 MILLIGRAM/SQ. METER, INTRAVENOUS INFUSION
     Dates: start: 20160921
  7. ABRAXANE [Suspect]
     Active Substance: PACLITAXEL
     Indication: Product used for unknown indication
     Dosage: INTRAVENOUS INFUSION, 842 MG/M2
     Dates: start: 201610
  8. ABRAXANE [Suspect]
     Active Substance: PACLITAXEL
     Indication: Product used for unknown indication
     Dosage: INTRAVENOUS INFUSION, 776 MG/M2
     Dates: start: 201611
  9. ABRAXANE [Suspect]
     Active Substance: PACLITAXEL
     Indication: Product used for unknown indication
     Dosage: INTRAVENOUS INFUSION, 536 MILLIGRAM/SQ. METER
     Dates: start: 20161012
  10. ABRAXANE [Suspect]
     Active Substance: PACLITAXEL
     Indication: Product used for unknown indication
     Dosage: INTRAVENOUS INFUSION, 200 MG/M2
     Dates: start: 201610
  11. GEMCITABINE [Suspect]
     Active Substance: GEMCITABINE
     Indication: Pancreatic carcinoma
     Dosage: 1218 MILLIGRAM/SQ. METER
     Route: 065
     Dates: start: 20170112
  12. ABRAXANE [Suspect]
     Active Substance: PACLITAXEL
     Indication: Product used for unknown indication
     Dosage: INTRAVENOUS INFUSION, 190 MG/M2
     Dates: start: 201701, end: 20170210
  13. GEMCITABINE [Suspect]
     Active Substance: GEMCITABINE
     Indication: Product used for unknown indication
     Dosage: 3390 MILLIGRAM/SQ. METER
     Route: 065
     Dates: start: 201701
  14. GEMCITABINE [Suspect]
     Active Substance: GEMCITABINE
     Indication: Product used for unknown indication
     Dosage: 1642 MILLIGRAM/SQ. METER
     Route: 065
     Dates: start: 201610
  15. GEMCITABINE [Suspect]
     Active Substance: GEMCITABINE
     Indication: Product used for unknown indication
     Dosage: 1209 MILLIGRAM/SQ. METER
     Dates: start: 201701
  16. GEMCITABINE [Suspect]
     Active Substance: GEMCITABINE
     Indication: Product used for unknown indication
     Dosage: 1635 MILLIGRAM/SQ. METER
     Dates: start: 201610
  17. GEMCITABINE [Suspect]
     Active Substance: GEMCITABINE
     Indication: Product used for unknown indication
     Dosage: 842 MILLIGRAM/SQ. METER
     Dates: start: 201609
  18. GEMCITABINE [Suspect]
     Active Substance: GEMCITABINE
     Indication: Product used for unknown indication
     Dosage: 1636 MILLIGRAM/SQ. METER
     Dates: start: 201610
  19. GEMCITABINE [Suspect]
     Active Substance: GEMCITABINE
     Indication: Product used for unknown indication
     Dosage: 963 MILLIGRAM/SQ. METER
     Dates: start: 201611
  20. GEMCITABINE [Suspect]
     Active Substance: GEMCITABINE
     Indication: Pancreatic carcinoma
     Dosage: 4306 MILLIGRAM/SQ. METER
     Dates: start: 201609
  21. GEMCITABINE [Suspect]
     Active Substance: GEMCITABINE
     Indication: Product used for unknown indication
     Dosage: 4913 MILLIGRAM/SQ. METER
     Dates: start: 20161012
  22. ABRAXANE [Suspect]
     Active Substance: PACLITAXEL
     Indication: Product used for unknown indication
     Dosage: INTRAVENOUS INFUSION, 104 MG/M2
     Dates: start: 201609
  23. GEMCITABINE [Suspect]
     Active Substance: GEMCITABINE
     Indication: Product used for unknown indication
     Dosage: 1691 MILLIGRAM/SQ. METER
     Dates: start: 201609
  24. GEMCITABINE [Suspect]
     Active Substance: GEMCITABINE
     Indication: Product used for unknown indication
     Dosage: 6221 MILLIGRAM/SQ. METER
     Dates: start: 201611
  25. ABRAXANE [Suspect]
     Active Substance: PACLITAXEL
     Indication: Product used for unknown indication
     Dosage: INTRAVENOUS INFUSION, 163 MG/M2
     Dates: start: 201610
  26. GEMCITABINE [Suspect]
     Active Substance: GEMCITABINE
     Indication: Pancreatic carcinoma
     Dosage: 5424 MILLIGRAM/SQ. METER
     Dates: start: 201701, end: 20170210
  27. GEMCITABINE [Suspect]
     Active Substance: GEMCITABINE
     Indication: Product used for unknown indication
     Dosage: 1289 MILLIGRAM/SQ. METER
     Dates: start: 20161117
  28. ABRAXANE [Suspect]
     Active Substance: PACLITAXEL
     Indication: Product used for unknown indication
     Dosage: 526 MILLIGRAM/SQ. METER
     Dates: start: 20161012
  29. ABRAXANE [Suspect]
     Active Substance: PACLITAXEL
     Indication: Product used for unknown indication
     Dosage: INTRAVENOUS INFUSION, 161 MG/M2
     Dates: start: 201611
  30. GEMCITABINE [Suspect]
     Active Substance: GEMCITABINE
     Indication: Pancreatic carcinoma
     Dosage: 1295 MILLIGRAM/SQ. METER
     Dates: start: 201611
  31. ABRAXANE [Suspect]
     Active Substance: PACLITAXEL
     Indication: Product used for unknown indication
     Dosage: INTRAVENOUS INFUSION,485 MG/M2
     Dates: start: 201611
  32. ABRAXANE [Suspect]
     Active Substance: PACLITAXEL
     Indication: Product used for unknown indication
     Dosage: INTRAVENOUS INFUSION, 162 MG/M2
     Dates: start: 20161117
  33. GEMCITABINE [Suspect]
     Active Substance: GEMCITABINE
     Indication: Product used for unknown indication
     Dosage: 3888 MILLIGRAM/SQ. METER
     Dates: start: 201611
  34. GEMCITABINE [Suspect]
     Active Substance: GEMCITABINE
     Indication: Product used for unknown indication
     Dosage: 1304.29 MG
     Dates: start: 20161215
  35. ABRAXANE [Suspect]
     Active Substance: PACLITAXEL
     Indication: Product used for unknown indication
     Dosage: INTRAVENOUS INFUSION, 119 MG/M2
     Dates: start: 20170112
  36. ABRAXANE [Suspect]
     Active Substance: PACLITAXEL
     Indication: Product used for unknown indication
     Dosage: INTRAVENOUS INFUSION, 211 MG/M2
     Dates: start: 201609

REACTIONS (4)
  - Leukopenia [Recovered/Resolved]
  - Anastomotic ulcer [Recovered/Resolved]
  - Neutropenia [Recovered/Resolved]
  - Anaemia [Recovered/Resolved]

NARRATIVE: CASE EVENT DATE: 20160928
